FAERS Safety Report 6792653-8 (Version None)
Quarter: 2010Q2

REPORT INFORMATION
  Report Type: 
  Country: None (occurrence: None)
  Receive Date: 20100624
  Receipt Date: 20080915
  Transmission Date: 20101027
  Serious: No
  Sender: FDA-Public Use
  Company Number: US-PFIZER INC-2008077564

PATIENT
  Sex: Female
  Weight: 168.2 kg

DRUGS (7)
  1. GEODON [Suspect]
     Indication: PSYCHOTIC DISORDER
     Route: 048
     Dates: start: 20080101
  2. LEXAPRO [Concomitant]
  3. CYMBALTA [Concomitant]
  4. SYNTHROID [Concomitant]
  5. SEROQUEL [Concomitant]
  6. HERBAL NOS/MINERALS NOS [Concomitant]
  7. POTASSIUM [Concomitant]

REACTIONS (1)
  - ANXIETY [None]
